FAERS Safety Report 6288328-4 (Version None)
Quarter: 2009Q3

REPORT INFORMATION
  Report Type: 
  Country: None (occurrence: None)
  Receive Date: 20090729
  Receipt Date: 20090715
  Transmission Date: 20100115
  Serious: Yes (Hospitalization)
  Sender: FDA-Public Use
  Company Number: US-RB-018516-09

PATIENT
  Sex: Female

DRUGS (3)
  1. MUCINEX DM [Suspect]
     Route: 048
  2. ADVAIR HFA [Concomitant]
  3. SINGULAIR [Concomitant]

REACTIONS (1)
  - DYSPNOEA [None]
